FAERS Safety Report 12189657 (Version 1)
Quarter: 2016Q1

REPORT INFORMATION
  Report Type: Spontaneous
  Country: US (occurrence: US)
  Receive Date: 20160318
  Receipt Date: 20160318
  Transmission Date: 20160526
  Serious: No
  Sender: FDA-Public Use
  Company Number: US-ALEMBIC PHARMACUETICALS LIMITED-2016SCAL000175

PATIENT
  Age: 53 Year
  Sex: Female

DRUGS (4)
  1. THERAQUIL (QUETIAPINE) [Concomitant]
     Indication: BIPOLAR II DISORDER
     Dosage: 100 MG, UNK
     Route: 048
  2. DESVENLAFAXINE. [Suspect]
     Active Substance: DESVENLAFAXINE
     Indication: DEPRESSION
     Dosage: 1 DF, QD
     Route: 048
     Dates: start: 201602, end: 201602
  3. VALIUM [Concomitant]
     Active Substance: DIAZEPAM
     Indication: ANXIETY
     Dosage: 0.5 MG, UNK
     Route: 048
  4. CYMBALTA [Concomitant]
     Active Substance: DULOXETINE HYDROCHLORIDE
     Indication: BIPOLAR II DISORDER
     Dosage: 60 MG, UNK
     Route: 048

REACTIONS (3)
  - Dizziness [Unknown]
  - Hypertension [Recovered/Resolved]
  - Heart rate increased [Recovered/Resolved]

NARRATIVE: CASE EVENT DATE: 201602
